FAERS Safety Report 5690125-5 (Version None)
Quarter: 2008Q2

REPORT INFORMATION
  Report Type: 
  Country: None (occurrence: None)
  Receive Date: 20080401
  Receipt Date: 20080401
  Transmission Date: 20081010
  Serious: No
  Sender: FDA-Public Use
  Company Number: None

PATIENT
  Sex: Male
  Weight: 78 kg

DRUGS (6)
  1. HEPARIN [Suspect]
     Dosage: 3 ML VD IV
     Route: 042
     Dates: start: 20080121, end: 20080228
  2. HEPARIN [Suspect]
     Dosage: 3 ML VD IV
     Route: 042
     Dates: start: 20080229, end: 20080323
  3. HEPARIN [Suspect]
  4. FUROSEMIDE [Concomitant]
  5. DAPTOMYCIN [Concomitant]
  6. LEVAQUIN [Concomitant]

REACTIONS (1)
  - RESPIRATORY DISTRESS [None]
